FAERS Safety Report 8143893-7 (Version None)
Quarter: 2012Q1

REPORT INFORMATION
  Report Type: 
  Country: None (occurrence: None)
  Receive Date: 20120217
  Receipt Date: 20120208
  Transmission Date: 20120608
  Serious: Yes (Other)
  Sender: FDA-Public Use
  Company Number: US-SANOFI-AVENTIS-2012SA008570

PATIENT
  Age: 58 Year
  Sex: Female

DRUGS (7)
  1. LAMOTRIGINE [Concomitant]
  2. NOVOLOG [Concomitant]
     Dosage: 3-6 TIMES A DAY
  3. LANTUS [Suspect]
     Dosage: EVERY MORNING DOSE:15 UNIT(S)
     Route: 058
  4. LIPITOR [Concomitant]
  5. HALDOL [Concomitant]
  6. EFFEXOR [Concomitant]
  7. PLAVIX [Concomitant]

REACTIONS (3)
  - GENERAL PHYSICAL HEALTH DETERIORATION [None]
  - POOR QUALITY SLEEP [None]
  - BLOOD GLUCOSE ABNORMAL [None]
